FAERS Safety Report 5644827-7 (Version None)
Quarter: 2008Q1

REPORT INFORMATION
  Report Type: 
  Country: None (occurrence: None)
  Receive Date: 20080229
  Receipt Date: 20070821
  Transmission Date: 20080703
  Serious: No
  Sender: FDA-Public Use
  Company Number: A0676489A

PATIENT
  Sex: Female

DRUGS (1)
  1. VALTREX [Suspect]
     Indication: GENITAL HERPES
     Route: 048

REACTIONS (4)
  - EMOTIONAL DISTRESS [None]
  - GENITAL HERPES [None]
  - PARTNER STRESS [None]
  - SEXUAL TRANSMISSION OF INFECTION [None]
